FAERS Safety Report 4299341-0 (Version None)
Quarter: 2004Q1

REPORT INFORMATION
  Report Type: 
  Country: None (occurrence: None)
  Receive Date: 20040217
  Receipt Date: 20040205
  Transmission Date: 20041129
  Serious: Yes (Other)
  Sender: FDA-Public Use
  Company Number: JP-SHR-04-020951

PATIENT
  Age: 69 Year
  Sex: Male

DRUGS (2)
  1. FERIDEX I.V. [Suspect]
     Indication: NUCLEAR MAGNETIC RESONANCE IMAGING
     Dosage: ML, 1 DOSE, INTRAVENOUS
     Route: 042
     Dates: start: 20040126, end: 20040126
  2. INTRON A [Concomitant]

REACTIONS (7)
  - HEADACHE [None]
  - INFUSION RELATED REACTION [None]
  - PALPITATIONS [None]
  - PYREXIA [None]
  - RESPIRATORY DISTRESS [None]
  - SHOCK [None]
  - SUDDEN HEARING LOSS [None]
